FAERS Safety Report 25573523 (Version 1)
Quarter: 2025Q3

REPORT INFORMATION
  Report Type: Spontaneous
  Country: US (occurrence: None)
  Receive Date: 20250716
  Receipt Date: 20250716
  Transmission Date: 20251020
  Serious: Yes (Disabling, Other)
  Sender: FDA-CTU
  Company Number: None

PATIENT
  Age: 25 Year
  Sex: Female
  Weight: 45 kg

DRUGS (5)
  1. ESCITALOPRAM [Suspect]
     Active Substance: ESCITALOPRAM OXALATE
     Indication: Generalised anxiety disorder
     Dates: start: 20150101, end: 20241227
  2. ESCITALOPRAM [Suspect]
     Active Substance: ESCITALOPRAM OXALATE
     Indication: Panic disorder
  3. LORAZEPAM [Concomitant]
     Active Substance: LORAZEPAM
  4. MELATONIN [Concomitant]
     Active Substance: MELATONIN
  5. MAGNESIUM GLYCINATE [Concomitant]
     Active Substance: MAGNESIUM GLYCINATE

REACTIONS (11)
  - Neck pain [None]
  - Back pain [None]
  - Suicidal ideation [None]
  - Tremor [None]
  - Temperature intolerance [None]
  - Temperature intolerance [None]
  - Migraine [None]
  - Muscle atrophy [None]
  - Decreased appetite [None]
  - Withdrawal syndrome [None]
  - Impaired quality of life [None]

NARRATIVE: CASE EVENT DATE: 20240724
